FAERS Safety Report 17580780 (Version 1)
Quarter: 2020Q1

REPORT INFORMATION
  Report Type: Report from Study
  Country: CA (occurrence: CA)
  Receive Date: 20200325
  Receipt Date: 20200325
  Transmission Date: 20200409
  Serious: Yes (Hospitalization, Other)
  Sender: FDA-Public Use
  Company Number: NVSC2019CA078646

PATIENT
  Sex: Female

DRUGS (3)
  1. RITALIN [Suspect]
     Active Substance: METHYLPHENIDATE HYDROCHLORIDE
     Indication: PRODUCT USED FOR UNKNOWN INDICATION
     Route: 065
  2. JAKAVI [Suspect]
     Active Substance: RUXOLITINIB
     Indication: MYELOFIBROSIS
     Dosage: 10 MG, BID
     Route: 048
     Dates: start: 20190603
  3. XARELTO [Concomitant]
     Active Substance: RIVAROXABAN
     Indication: PRODUCT USED FOR UNKNOWN INDICATION
     Route: 065

REACTIONS (15)
  - Fatigue [Not Recovered/Not Resolved]
  - Contusion [Not Recovered/Not Resolved]
  - Malaise [Unknown]
  - Abdominal pain [Unknown]
  - Leukaemia [Unknown]
  - Hypotension [Unknown]
  - Splenomegaly [Unknown]
  - Thrombosis [Unknown]
  - Headache [Unknown]
  - Somnolence [Unknown]
  - Constipation [Unknown]
  - Abdominal pain upper [Unknown]
  - Dizziness [Unknown]
  - Dry skin [Unknown]
  - Skin exfoliation [Unknown]
